FAERS Safety Report 12753647 (Version 1)
Quarter: 2016Q3

REPORT INFORMATION
  Report Type: Spontaneous
  Country: US (occurrence: US)
  Receive Date: 20160916
  Receipt Date: 20160916
  Transmission Date: 20161109
  Serious: No
  Sender: FDA-Public Use
  Company Number: US-BAYER-2016-174891

PATIENT
  Age: 81 Year
  Sex: Female
  Weight: 64.4 kg

DRUGS (2)
  1. CARAFATE [Concomitant]
     Active Substance: SUCRALFATE
  2. MIRALAX [Suspect]
     Active Substance: POLYETHYLENE GLYCOL 3350
     Dosage: 1 DF, UNK
     Route: 048
     Dates: start: 2015, end: 20160609

REACTIONS (3)
  - Dyspepsia [Unknown]
  - Product use issue [Unknown]
  - Flatulence [Unknown]
